FAERS Safety Report 12083967 (Version 1)
Quarter: 2016Q1

REPORT INFORMATION
  Report Type: Spontaneous
  Country: US (occurrence: None)
  Receive Date: 20160216
  Receipt Date: 20160216
  Transmission Date: 20160526
  Serious: Yes (Hospitalization)
  Sender: FDA-Public Use
  Company Number: None

PATIENT
  Age: 81 Year
  Sex: Male
  Weight: 91 kg

DRUGS (1)
  1. AMIODARONE 200 MG [Suspect]
     Active Substance: AMIODARONE
     Route: 048

REACTIONS (3)
  - Respiratory failure [None]
  - Pulmonary mass [None]
  - Obliterative bronchiolitis [None]

NARRATIVE: CASE EVENT DATE: 20160207
